FAERS Safety Report 7959598-9 (Version None)
Quarter: 2011Q4

REPORT INFORMATION
  Report Type: 
  Country: None (occurrence: None)
  Receive Date: 20111206
  Receipt Date: 20111122
  Transmission Date: 20120403
  Serious: Yes (Other)
  Sender: FDA-Public Use
  Company Number: DE-MYLANLABS-2011S1024070

PATIENT
  Age: 50 Year
  Sex: Male
  Weight: 91 kg

DRUGS (1)
  1. PRAVASTATIN [Suspect]
     Indication: HYPERLIPIDAEMIA
     Route: 048
     Dates: start: 20100917, end: 20110610

REACTIONS (5)
  - HEADACHE [None]
  - EAR DISCOMFORT [None]
  - COUGH [None]
  - LYMPHADENOPATHY [None]
  - OROPHARYNGEAL PAIN [None]
